FAERS Safety Report 17732565 (Version 1)
Quarter: 2020Q2

REPORT INFORMATION
  Report Type: Spontaneous
  Country: CN (occurrence: CN)
  Receive Date: 20200501
  Receipt Date: 20200501
  Transmission Date: 20200714
  Serious: Yes (Hospitalization)
  Sender: FDA-Public Use
  Company Number: CN-ROCHE-2590563

PATIENT
  Age: 28 Year
  Sex: Female
  Weight: 71 kg

DRUGS (8)
  1. DOCETAXEL. [Suspect]
     Active Substance: DOCETAXEL
     Indication: BREAST CANCER
     Route: 041
     Dates: start: 20200320, end: 20200320
  2. CARBOPLATIN. [Suspect]
     Active Substance: CARBOPLATIN
     Indication: BREAST CANCER
     Dosage: DIVIDED INTO 2 DOSES (300 MG + 450 MG)
     Route: 041
     Dates: start: 20200320, end: 20200320
  3. HERCEPTIN [Suspect]
     Active Substance: TRASTUZUMAB
     Indication: BREAST CANCER
     Route: 041
     Dates: start: 20200319, end: 20200319
  4. PERJETA [Suspect]
     Active Substance: PERTUZUMAB
     Indication: BREAST CANCER
     Route: 065
     Dates: start: 20200319, end: 20200319
  5. SODIUM CHLORIDE IV [Concomitant]
     Active Substance: SODIUM CHLORIDE
     Indication: BREAST CANCER
     Dosage: LOT NO. 2019110743, SOLVENT FOR PERTUZUMAB
     Route: 041
     Dates: start: 20200319, end: 20200319
  6. SODIUM CHLORIDE IV [Concomitant]
     Active Substance: SODIUM CHLORIDE
     Dosage: LOT NO. 2019110743, SOLVENT FOR DOCETAXEL INJECTION
     Route: 041
     Dates: start: 20200320, end: 20200320
  7. SODIUM CHLORIDE IV [Concomitant]
     Active Substance: SODIUM CHLORIDE
     Dosage: LOT NO. 2019121541, SOLVENT FOR CARBOPLATIN INJECTION (DIVIDED INTO 2 DOSES: 570 ML + 855 ML)
     Route: 041
     Dates: start: 20200320, end: 20200320
  8. SODIUM CHLORIDE IV [Concomitant]
     Active Substance: SODIUM CHLORIDE
     Dosage: LOT NO. 2019110743, SOLVENT FOR TRASTUZUMAB
     Route: 041
     Dates: start: 20200319, end: 20200319

REACTIONS (2)
  - Bone marrow failure [Recovered/Resolved]
  - Hepatic function abnormal [Recovered/Resolved]
